FAERS Safety Report 23810284 (Version 4)
Quarter: 2024Q2

REPORT INFORMATION
  Report Type: Report from Study
  Country: DE (occurrence: DE)
  Receive Date: 20240502
  Receipt Date: 20240625
  Transmission Date: 20240716
  Serious: Yes (Hospitalization, Other)
  Sender: FDA-Public Use
  Company Number: DE-TAKEDA-2024TUS040420

PATIENT
  Age: 61 Year
  Sex: Female

DRUGS (9)
  1. FRUQUINTINIB [Suspect]
     Active Substance: FRUQUINTINIB
     Indication: Rectal cancer
     Dosage: 5 MILLIGRAM, QD
     Route: 048
     Dates: start: 20240418, end: 20240612
  2. METOPROLOL [Concomitant]
     Active Substance: METOPROLOL
     Indication: Hypertension
     Dosage: 47.5 MILLIGRAM, QD
     Route: 048
     Dates: start: 202202
  3. Novalgin [Concomitant]
     Indication: Pain
     Dosage: UNK UNK, QD
     Route: 048
     Dates: start: 202202
  4. PANTOPRAZOLE SODIUM [Concomitant]
     Active Substance: PANTOPRAZOLE SODIUM
     Indication: Prophylaxis
     Dosage: 20 MILLIGRAM, QD
     Route: 048
     Dates: start: 202202
  5. HYDROMORPHONE HYDROCHLORIDE [Concomitant]
     Active Substance: HYDROMORPHONE HYDROCHLORIDE
     Indication: Pain
     Dosage: 32 MILLIGRAM, QD
     Route: 048
     Dates: start: 20240412
  6. HYDROMORPHONE [Concomitant]
     Active Substance: HYDROMORPHONE
     Indication: Pain
     Dosage: 26 MILLIGRAM
     Route: 048
     Dates: start: 20240412
  7. HYDROMORPHONE [Concomitant]
     Active Substance: HYDROMORPHONE
     Dosage: 32 MILLIGRAM
     Route: 065
     Dates: start: 20240412
  8. IBUPROFEN [Concomitant]
     Active Substance: IBUPROFEN
     Indication: Pain
     Dosage: 600 MILLIGRAM, TID
     Route: 048
     Dates: start: 20240412
  9. IBUPROFEN [Concomitant]
     Active Substance: IBUPROFEN
     Dosage: 1600 MILLIGRAM, QD
     Route: 048
     Dates: start: 20240412

REACTIONS (5)
  - Rectal cancer [Unknown]
  - Metastases to bone [Unknown]
  - Stoma site haemorrhage [Recovered/Resolved]
  - Dyspnoea exertional [Not Recovered/Not Resolved]
  - Haemoglobin decreased [Unknown]

NARRATIVE: CASE EVENT DATE: 20240424
